FAERS Safety Report 6081442-8 (Version None)
Quarter: 2009Q1

REPORT INFORMATION
  Report Type: 
  Country: None (occurrence: None)
  Receive Date: 20090218
  Receipt Date: 20090203
  Transmission Date: 20090719
  Serious: Yes (Other)
  Sender: FDA-Public Use
  Company Number: ES-JNJFOC-20090201614

PATIENT
  Sex: Female

DRUGS (8)
  1. REMICADE [Suspect]
     Indication: RHEUMATOID ARTHRITIS
     Route: 042
  2. CORTICOID [Concomitant]
  3. LEFLUNOMIDE [Concomitant]
  4. AINES [Concomitant]
  5. OMEPRAZOLE [Concomitant]
  6. CALCIUM VITAMIN D [Concomitant]
  7. METHOTREXATE [Concomitant]
  8. ADALIMUMAB [Concomitant]

REACTIONS (2)
  - INFUSION RELATED REACTION [None]
  - RECTAL ADENOMA [None]
